FAERS Safety Report 18458974 (Version 1)
Quarter: 2020Q4

REPORT INFORMATION
  Report Type: Spontaneous
  Country: PL (occurrence: PL)
  Receive Date: 20201103
  Receipt Date: 20201103
  Transmission Date: 20210114
  Serious: Yes (Other)
  Sender: FDA-Public Use
  Company Number: NVSC2020PL287757

PATIENT
  Age: 66 Year
  Sex: Female

DRUGS (4)
  1. LAPATINIB [Suspect]
     Active Substance: LAPATINIB
     Indication: BREAST CANCER METASTATIC
     Dosage: UNK (DOSAGE ACCORDING TO SPC)
     Route: 065
  2. CAPECITABINE. [Suspect]
     Active Substance: CAPECITABINE
     Indication: BREAST CANCER METASTATIC
     Dosage: UNK (DOSAGE ACCORDING TO SPC )
     Route: 048
  3. KADCYLA [Suspect]
     Active Substance: ADO-TRASTUZUMAB EMTANSINE
     Indication: BREAST CANCER METASTATIC
     Dosage: 3.6 MG/KG, (M.C., IN PROGRESS)
     Route: 065
     Dates: start: 2018
  4. HERCEPTIN [Suspect]
     Active Substance: TRASTUZUMAB
     Indication: BREAST CANCER METASTATIC
     Dosage: UNK (DURATION: 45 MONTHS, DOSAGE ACCORDING TO SPC  )
     Route: 065
     Dates: start: 2011, end: 201503

REACTIONS (1)
  - Metastases to lymph nodes [Unknown]
